FAERS Safety Report 15178666 (Version 1)
Quarter: 2018Q3

REPORT INFORMATION
  Report Type: Spontaneous
  Country: US (occurrence: US)
  Receive Date: 20180722
  Receipt Date: 20180722
  Transmission Date: 20181010
  Serious: Yes (Other)
  Sender: FDA-Public Use
  Company Number: US-MYLANLABS-2018M1050900

PATIENT
  Sex: Male

DRUGS (1)
  1. FENTANYL TRANSDERMAL SYSTEM [Suspect]
     Active Substance: FENTANYL
     Indication: PAIN
     Dosage: UNK
     Route: 062

REACTIONS (5)
  - Product adhesion issue [Unknown]
  - Spinal fracture [Recovered/Resolved]
  - Application site pruritus [Recovering/Resolving]
  - Wrong technique in product usage process [Unknown]
  - Product quality issue [Recovering/Resolving]

NARRATIVE: CASE EVENT DATE: 20180705
